FAERS Safety Report 12525334 (Version 1)
Quarter: 2016Q3

REPORT INFORMATION
  Report Type: Spontaneous
  Country: IT (occurrence: IT)
  Receive Date: 20160704
  Receipt Date: 20160704
  Transmission Date: 20161109
  Serious: Yes (Other)
  Sender: FDA-Public Use
  Company Number: IT-CONCORDIA PHARMACEUTICALS INC.-GSH201606-003300

PATIENT
  Age: 62 Year
  Sex: Female

DRUGS (4)
  1. PHENOBARBITAL HYOSCYAMINE ATROPINE SCOPOLAMINE [Suspect]
     Active Substance: ATROPINE SULFATE\HYOSCYAMINE SULFATE\PHENOBARBITAL\SCOPOLAMINE HYDROBROMIDE
     Dosage: ABOUT 2 DAYS
     Route: 062
  2. PHENOBARBITAL HYOSCYAMINE ATROPINE SCOPOLAMINE [Suspect]
     Active Substance: ATROPINE SULFATE\HYOSCYAMINE SULFATE\PHENOBARBITAL\SCOPOLAMINE HYDROBROMIDE
     Indication: MOTION SICKNESS
     Dosage: 1.5 MG SCOPOLAMINE
     Route: 062
  3. PHENOBARBITAL HYOSCYAMINE ATROPINE SCOPOLAMINE [Suspect]
     Active Substance: ATROPINE SULFATE\HYOSCYAMINE SULFATE\PHENOBARBITAL\SCOPOLAMINE HYDROBROMIDE
     Dosage: CONTINUOUSLY FOR A WEEK
     Route: 062
  4. PHENOBARBITAL HYOSCYAMINE ATROPINE SCOPOLAMINE [Suspect]
     Active Substance: ATROPINE SULFATE\HYOSCYAMINE SULFATE\PHENOBARBITAL\SCOPOLAMINE HYDROBROMIDE
     Dosage: 2 YEARS AGO, CONTINUOUSLY FOR 7 DAYS
     Route: 062

REACTIONS (9)
  - Hypersensitivity [Unknown]
  - Dry eye [Unknown]
  - Skin irritation [Unknown]
  - Dry mouth [Unknown]
  - Dysstasia [Recovered/Resolved]
  - Hypotension [Recovered/Resolved]
  - Asthenia [Recovered/Resolved]
  - Hyperhidrosis [Recovered/Resolved]
  - Drug withdrawal syndrome [Recovered/Resolved]
